FAERS Safety Report 6427039-9 (Version None)
Quarter: 2009Q4

REPORT INFORMATION
  Report Type: 
  Country: None (occurrence: None)
  Receive Date: 20091104
  Receipt Date: 20091026
  Transmission Date: 20100525
  Serious: Yes (Death, Hospitalization)
  Sender: FDA-Public Use
  Company Number: GB-WATSON-2009-09051

PATIENT
  Age: 62 Year
  Sex: Female

DRUGS (6)
  1. ETOPOSIDE [Suspect]
     Indication: CHORIOCARCINOMA
     Dosage: 100 MG/M2, UNK
     Route: 042
     Dates: start: 20070101
  2. CISPLATIN [Suspect]
     Indication: CHORIOCARCINOMA
     Dosage: 20 MG/M2, UNK
     Route: 042
     Dates: start: 20070101
  3. METHOTREXATE [Suspect]
     Indication: CHORIOCARCINOMA
     Dosage: UNK
     Dates: start: 20070101
  4. CYCLOPHOSPHAMIDE [Suspect]
     Indication: CHORIOCARCINOMA
     Dosage: UNK
     Dates: start: 20070101
  5. VINCRISTINE [Suspect]
     Indication: CHORIOCARCINOMA
     Dosage: UNK
     Dates: start: 20070101
  6. DACTINOMYCIN [Suspect]
     Indication: CHORIOCARCINOMA
     Dosage: UNK
     Dates: start: 20070101

REACTIONS (1)
  - TOXIC EPIDERMAL NECROLYSIS [None]
